FAERS Safety Report 5829277-2 (Version None)
Quarter: 2008Q3

REPORT INFORMATION
  Report Type: 
  Country: None (occurrence: None)
  Receive Date: 20080731
  Receipt Date: 20080722
  Transmission Date: 20090109
  Serious: Yes (Other)
  Sender: FDA-Public Use
  Company Number: FR-ELI_LILLY_AND_COMPANY-FR200807004775

PATIENT
  Age: 54 Year
  Sex: Male
  Weight: 76 kg

DRUGS (3)
  1. ZYPREXA [Suspect]
     Indication: PSYCHOTIC DISORDER
     Dosage: 15 MG, DAILY (1/D)
     Route: 048
     Dates: start: 20071101
  2. BENZODIAZEPINE DERIVATIVES [Concomitant]
     Indication: PSYCHOTIC DISORDER
     Route: 048
  3. SSRI [Concomitant]
     Indication: PSYCHOTIC DISORDER
     Route: 048

REACTIONS (4)
  - BLOOD CHOLESTEROL INCREASED [None]
  - BLOOD GLUCOSE INCREASED [None]
  - BLOOD TRIGLYCERIDES INCREASED [None]
  - HEPATOCELLULAR INJURY [None]
